FAERS Safety Report 21179527 (Version 2)
Quarter: 2023Q1

REPORT INFORMATION
  Report Type: Spontaneous
  Country: FR (occurrence: FR)
  Receive Date: 20220805
  Receipt Date: 20230104
  Transmission Date: 20230418
  Serious: Yes (Hospitalization)
  Sender: FDA-Public Use
  Company Number: None

PATIENT
  Age: 55 Year
  Sex: Male
  Weight: 63 kg

DRUGS (5)
  1. PEMBROLIZUMAB [Suspect]
     Active Substance: PEMBROLIZUMAB
     Indication: Lung adenocarcinoma
     Dosage: 166.67 MILLIGRAM, 1 CYCLICAL
     Route: 042
     Dates: start: 20220511, end: 20220511
  2. ONDANSETRON [Suspect]
     Active Substance: ONDANSETRON
     Indication: Lung adenocarcinoma
     Dosage: 8 MILLIGRAM, 1 CYCLICAL
     Route: 042
     Dates: start: 20220511, end: 20220601
  3. DEXAMETHASONE [Suspect]
     Active Substance: DEXAMETHASONE
     Indication: Lung adenocarcinoma
     Dosage: 20 MILLIGRAM, QD
     Route: 042
     Dates: start: 20220511, end: 20220601
  4. CARBOPLATIN [Suspect]
     Active Substance: CARBOPLATIN
     Indication: Lung adenocarcinoma
     Dosage: UNSPECIFIED
     Route: 042
     Dates: start: 20220511, end: 20220511
  5. PEMETREXED [Suspect]
     Active Substance: PEMETREXED
     Indication: Lung neoplasm malignant
     Dosage: UNSPECIFIED
     Route: 042
     Dates: start: 20220511, end: 20220511

REACTIONS (2)
  - Anaphylactic reaction [Recovered/Resolved]
  - Angioedema [Recovered/Resolved]

NARRATIVE: CASE EVENT DATE: 20220521
